FAERS Safety Report 21798340 (Version 1)
Quarter: 2022Q4

REPORT INFORMATION
  Report Type: Spontaneous
  Country: US (occurrence: None)
  Receive Date: 20221229
  Receipt Date: 20221229
  Transmission Date: 20230112
  Serious: Yes (Hospitalization)
  Sender: FDA-Public Use
  Company Number: None

PATIENT
  Sex: Male

DRUGS (18)
  1. REPATHA [Suspect]
     Active Substance: EVOLOCUMAB
     Indication: Hyperlipidaemia
     Dosage: 420 MG/3.5ML SUBCUTANEOUS?INJECT 420 MG UNDER THE SKIN (SUBCUTANEOUS INJECTION) EVERY 30 DAYS
     Route: 058
     Dates: start: 20180523
  2. ANORO ELLIPT AER [Concomitant]
  3. BACLOFEN [Concomitant]
     Active Substance: BACLOFEN
  4. CARVEDILOL [Concomitant]
     Active Substance: CARVEDILOL
  5. CLOPIDOGREL [Concomitant]
     Active Substance: CLOPIDOGREL BISULFATE
  6. DONEPEZIL [Concomitant]
     Active Substance: DONEPEZIL
  7. ENTRESTO [Concomitant]
     Active Substance: SACUBITRIL\VALSARTAN
  8. FUROSEMIDE [Concomitant]
     Active Substance: FUROSEMIDE
  9. GABAPENTIN [Concomitant]
     Active Substance: GABAPENTIN
  10. HYDROCODONE POW BITARTRA [Concomitant]
  11. MELOXICAM [Concomitant]
     Active Substance: MELOXICAM
  12. METOLAZONE [Concomitant]
     Active Substance: METOLAZONE
  13. NP THYROID [Concomitant]
     Active Substance: LEVOTHYROXINE\LIOTHYRONINE
  14. OMEPRAZOLE [Concomitant]
     Active Substance: OMEPRAZOLE
  15. PENICILLIN V POTASSIUM [Concomitant]
     Active Substance: PENICILLIN V POTASSIUM
  16. POT CL MICRO [Concomitant]
  17. PREDNISONE [Concomitant]
     Active Substance: PREDNISONE
  18. WARFARIN [Concomitant]
     Active Substance: WARFARIN

REACTIONS (3)
  - Urinary tract infection [None]
  - Dehydration [None]
  - Therapy interrupted [None]
